FAERS Safety Report 6917798-0 (Version None)
Quarter: 2010Q3

REPORT INFORMATION
  Report Type: 
  Country: None (occurrence: None)
  Receive Date: 20100810
  Receipt Date: 20100729
  Transmission Date: 20110219
  Serious: Yes (Hospitalization, Other)
  Sender: FDA-Public Use
  Company Number: BR-MEDIMMUNE-MEDI-0011466

PATIENT
  Sex: Male
  Weight: 13.6 kg

DRUGS (4)
  1. SYNAGIS [Suspect]
     Indication: CARDIAC DISORDER
     Route: 030
  2. CAPTOPRIL [Concomitant]
     Indication: BLOOD PRESSURE
     Route: 048
  3. PROPRANOLOL [Concomitant]
     Indication: BLOOD PRESSURE
     Route: 048
  4. AMLODIPINE [Concomitant]
     Indication: BLOOD PRESSURE
     Route: 048

REACTIONS (1)
  - COARCTATION OF THE AORTA [None]
